FAERS Safety Report 6828371-7 (Version None)
Quarter: 2010Q3

REPORT INFORMATION
  Report Type: 
  Country: None (occurrence: None)
  Receive Date: 20100709
  Receipt Date: 20070208
  Transmission Date: 20110219
  Serious: No
  Sender: FDA-Public Use
  Company Number: US-PFIZER INC-2007011044

PATIENT
  Age: 54 Year
  Sex: Female
  Weight: 61.23 kg

DRUGS (3)
  1. CHANTIX [Suspect]
     Indication: SMOKING CESSATION THERAPY
     Dates: start: 20070129
  2. ESTRADIOL [Concomitant]
  3. PROMETRIUM [Concomitant]

REACTIONS (1)
  - NAUSEA [None]
